FAERS Safety Report 6215177-5 (Version None)
Quarter: 2009Q2

REPORT INFORMATION
  Report Type: 
  Country: None (occurrence: None)
  Receive Date: 20090601
  Receipt Date: 20081031
  Transmission Date: 20091009
  Serious: Yes (Hospitalization, Other)
  Sender: FDA-Public Use
  Company Number: 280919

PATIENT
  Age: 56 Year
  Sex: Female
  Weight: 56.7 kg

DRUGS (4)
  1. ACTIVELLA [Suspect]
     Indication: MENSTRUATION IRREGULAR
     Dosage: 1 TAB
     Dates: start: 20020101, end: 20030101
  2. PREMARIN [Suspect]
     Indication: MENSTRUATION IRREGULAR
     Dosage: 1.25 MG
     Dates: start: 19970101, end: 20010101
  3. MEDROXYPROGESTERONE ACETATE [Suspect]
     Indication: MENSTRUATION IRREGULAR
  4. LOESTRIN 1.5/30 [Suspect]
     Indication: MENSTRUATION IRREGULAR
     Dosage: 1/20, ORAL
     Route: 048
     Dates: start: 19970101

REACTIONS (1)
  - BREAST CANCER [None]
